FAERS Safety Report 11820190 (Version 1)
Quarter: 2015Q4

REPORT INFORMATION
  Report Type: Report from Study
  Country: US (occurrence: US)
  Receive Date: 20151210
  Receipt Date: 20151210
  Transmission Date: 20160305
  Serious: Yes (Hospitalization)
  Sender: FDA-Public Use
  Company Number: US-AMGEN-USACT2015130282

PATIENT
  Age: 66 Year
  Sex: Female

DRUGS (9)
  1. IMODIUM [Concomitant]
     Active Substance: LOPERAMIDE HYDROCHLORIDE
     Dosage: UNK
  2. PEGFILGRASTIM [Suspect]
     Active Substance: PEGFILGRASTIM
     Indication: UTERINE LEIOMYOSARCOMA
     Dosage: 6 MG, ON DAY 9 OR DAY 10
     Route: 058
  3. FILGRASTIM [Suspect]
     Active Substance: FILGRASTIM
     Indication: UTERINE LEIOMYOSARCOMA
     Dosage: 150 MUG/M2, ON DAYS 9-15
     Route: 058
  4. FLAGYL [Concomitant]
     Active Substance: METRONIDAZOLE\METRONIDAZOLE HYDROCHLORIDE
     Dosage: UNK
  5. CIPRO                              /00697201/ [Concomitant]
     Active Substance: CIPROFLOXACIN
     Dosage: UNK
  6. BEVACIZUMAB [Concomitant]
     Active Substance: BEVACIZUMAB
     Indication: UTERINE LEIOMYOSARCOMA
     Dosage: 15 MG/KG, OVER 30 TO 90 MIN ON DAY 1
     Route: 042
     Dates: start: 20100121
  7. DOCETAXEL. [Suspect]
     Active Substance: DOCETAXEL
     Indication: UTERINE LEIOMYOSARCOMA
     Dosage: 75 MG/M2, OVER 60 MIN ON DAY 8
     Route: 042
  8. ATIVAN [Concomitant]
     Active Substance: LORAZEPAM
     Dosage: UNK
  9. GEMCITABINE [Suspect]
     Active Substance: GEMCITABINE\GEMCITABINE HYDROCHLORIDE
     Indication: UTERINE LEIOMYOSARCOMA
     Dosage: 900 MG/M2, OVER 90 MIN ON DAYS 1 AND 8
     Route: 042
     Dates: start: 20100121

REACTIONS (2)
  - Vomiting [Unknown]
  - Nausea [Unknown]

NARRATIVE: CASE EVENT DATE: 20100317
